FAERS Safety Report 5273019-9 (Version None)
Quarter: 2007Q1

REPORT INFORMATION
  Report Type: 
  Country: None (occurrence: None)
  Receive Date: 20070322
  Receipt Date: 20070309
  Transmission Date: 20070707
  Serious: Yes (Other)
  Sender: FDA-Public Use
  Company Number: US-SHR-US-2006-034878

PATIENT
  Age: 68 Year
  Sex: Female

DRUGS (8)
  1. MAGNEVIST [Suspect]
     Dosage: 40 ML, 1 DOSE
     Dates: start: 20030501, end: 20030501
  2. MAGNEVIST [Suspect]
     Dosage: 35 ML, 1 DOSE
     Dates: start: 20050901, end: 20050901
  3. MAGNEVIST [Suspect]
     Dosage: 40 ML, 1 DOSE
     Dates: start: 20060101, end: 20060101
  4. ULTRAVIST (PHARMACY BULK) [Concomitant]
     Indication: ANGIOGRAM
     Dosage: UNK, 1 DOSE
     Dates: start: 20031101, end: 20031101
  5. ULTRAVIST (PHARMACY BULK) [Concomitant]
     Dosage: 50 ML, 1 DOSE
     Dates: start: 20041101, end: 20041101
  6. ULTRAVIST (PHARMACY BULK) [Concomitant]
     Dosage: 20 ML, 1 DOSE
     Dates: start: 20041201, end: 20041201
  7. ULTRAVIST (PHARMACY BULK) [Concomitant]
     Dosage: 20 ML, 1 DOSE
     Dates: start: 20051201, end: 20051201
  8. NEURONTIN [Concomitant]
     Indication: DIABETIC NEUROPATHY

REACTIONS (3)
  - MOBILITY DECREASED [None]
  - NEPHROGENIC FIBROSING DERMOPATHY [None]
  - SYSTEMIC SCLEROSIS [None]
